FAERS Safety Report 6184480-X (Version None)
Quarter: 2009Q2

REPORT INFORMATION
  Report Type: 
  Country: None (occurrence: None)
  Receive Date: 20090508
  Receipt Date: 20090422
  Transmission Date: 20091009
  Serious: No
  Sender: FDA-Public Use
  Company Number: US-PFIZER INC-2009196220

PATIENT
  Sex: Male
  Weight: 96.3 kg

DRUGS (17)
  1. NAPROXEN [Suspect]
     Indication: OSTEOARTHRITIS
     Dosage: UNK
     Route: 048
     Dates: start: 20070823, end: 20080113
  2. BLINDED *PLACEBO [Suspect]
     Indication: OSTEOARTHRITIS
     Dosage: UNK
     Route: 048
     Dates: start: 20070823, end: 20080113
  3. BLINDED CELECOXIB [Suspect]
     Indication: OSTEOARTHRITIS
     Dosage: UNK
     Route: 048
     Dates: start: 20070823, end: 20080113
  4. IBUPROFEN [Suspect]
     Indication: OSTEOARTHRITIS
     Dosage: UNK
     Route: 048
     Dates: start: 20070823, end: 20080113
  5. NAPROXEN [Suspect]
     Dosage: UNK
     Route: 048
     Dates: start: 20070823, end: 20080113
  6. NAPROXEN [Suspect]
     Indication: RHEUMATOID ARTHRITIS
  7. BLINDED *PLACEBO [Suspect]
     Indication: RHEUMATOID ARTHRITIS
  8. BLINDED CELECOXIB [Suspect]
     Indication: RHEUMATOID ARTHRITIS
  9. IBUPROFEN [Suspect]
     Indication: RHEUMATOID ARTHRITIS
  10. NAPROXEN [Suspect]
  11. ESOMEPRAZOLE [Concomitant]
     Indication: PROPHYLAXIS
     Dosage: 40 MG, 1X/DAY
     Route: 048
     Dates: start: 20070823, end: 20080113
  12. SITAGLIPTIN [Concomitant]
     Dosage: UNK
     Route: 048
     Dates: start: 20030101
  13. GLUCOPHAGE [Concomitant]
     Dosage: UNK
     Route: 048
     Dates: start: 20030101
  14. LIPITOR [Concomitant]
     Dosage: UNK
     Route: 048
     Dates: start: 20030101
  15. DILTIAZEM [Concomitant]
     Dosage: UNK
     Route: 048
     Dates: start: 20030101
  16. VALSARTAN [Concomitant]
     Dosage: UNK
     Route: 048
     Dates: start: 20030101
  17. MULTI-VITAMINS [Concomitant]
     Dosage: UNK
     Route: 048
     Dates: start: 20080328

REACTIONS (1)
  - NO ADVERSE EVENT [None]
